FAERS Safety Report 13472681 (Version 1)
Quarter: 2017Q2

REPORT INFORMATION
  Report Type: Spontaneous
  Country: CH (occurrence: CH)
  Receive Date: 20170424
  Receipt Date: 20170424
  Transmission Date: 20170830
  Serious: Yes (Hospitalization, Other)
  Sender: FDA-Public Use
  Company Number: PHHY2017CH056178

PATIENT
  Sex: Male
  Weight: 2.16 kg

DRUGS (12)
  1. BLEOMYCIN [Suspect]
     Active Substance: BLEOMYCIN SULFATE
     Indication: FOETAL EXPOSURE DURING PREGNANCY
     Dosage: MOTHER DOSE: 10,000 UI/M2 OR 18,000 UI
     Route: 064
  2. EMEND [Suspect]
     Active Substance: APREPITANT
     Indication: FOETAL EXPOSURE DURING PREGNANCY
     Dosage: MOTHER DOSE: 125 MG AND 80 MG
     Route: 064
  3. VITAMIN B12 [Concomitant]
     Active Substance: CYANOCOBALAMIN
     Indication: FOETAL EXPOSURE DURING PREGNANCY
     Dosage: MOTHER DOSE UNKNOWN
     Route: 064
  4. GYNEFAM XL [Concomitant]
     Indication: FOETAL EXPOSURE DURING PREGNANCY
     Dosage: MOTHER DOSE: 1 DF QD
     Route: 064
  5. ZOFRAN [Suspect]
     Active Substance: ONDANSETRON HYDROCHLORIDE
     Indication: FOETAL EXPOSURE DURING PREGNANCY
     Dosage: MOTHER DOSE: 8 MG
     Route: 064
  6. FOLIC ACID. [Concomitant]
     Active Substance: FOLIC ACID
     Indication: FOETAL EXPOSURE DURING PREGNANCY
     Dosage: MOTHER DOSE 5 MG QD
     Route: 064
  7. DOXORUBICINE [Suspect]
     Active Substance: DOXORUBICIN
     Indication: FOETAL EXPOSURE DURING PREGNANCY
     Dosage: MOTHER DOSE 25 MG/M2 (45 MG)
     Route: 064
  8. DACIN [Suspect]
     Active Substance: DACARBAZINE
     Indication: FOETAL EXPOSURE DURING PREGNANCY
     Dosage: MOTHER DOSE: 375 MG/M2 OR 680 MG
     Route: 064
  9. SOLU-MEDROL [Suspect]
     Active Substance: METHYLPREDNISOLONE SODIUM SUCCINATE
     Indication: FOETAL EXPOSURE DURING PREGNANCY
     Dosage: MOTHER DOSE 125 MG
     Route: 064
  10. VELBE [Suspect]
     Active Substance: VINBLASTINE SULFATE
     Indication: FOETAL EXPOSURE DURING PREGNANCY
     Dosage: MOTHER DOSE: 6 MG/M2 (11 MG)
     Route: 064
  11. EUTHYROX [Concomitant]
     Active Substance: LEVOTHYROXINE SODIUM
     Indication: FOETAL EXPOSURE DURING PREGNANCY
     Dosage: MOTHER DOSE 25 UG
     Route: 064
  12. NEUPOGEN [Suspect]
     Active Substance: FILGRASTIM
     Indication: FOETAL EXPOSURE DURING PREGNANCY
     Dosage: MOTHER DOSE: 30 MIU
     Route: 064

REACTIONS (4)
  - Small for dates baby [Recovering/Resolving]
  - Neonatal respiratory distress syndrome [Recovered/Resolved]
  - Exposure during pregnancy [Unknown]
  - Hyperbilirubinaemia neonatal [Recovered/Resolved]

NARRATIVE: CASE EVENT DATE: 20160729
